FAERS Safety Report 9647983 (Version 1)
Quarter: 2013Q4

REPORT INFORMATION
  Report Type: Spontaneous
  Country: US (occurrence: US)
  Receive Date: 20131028
  Receipt Date: 20131028
  Transmission Date: 20140711
  Serious: No
  Sender: FDA-Public Use
  Company Number: US-PFIZER INC-2013305819

PATIENT
  Sex: Female

DRUGS (2)
  1. GABAPENTIN [Suspect]
     Indication: CARPAL TUNNEL SYNDROME
     Dosage: UNK
  2. GABAPENTIN [Suspect]
     Indication: MIGRAINE

REACTIONS (3)
  - Off label use [Unknown]
  - Dizziness [Unknown]
  - Malaise [Unknown]
